FAERS Safety Report 6467550-8 (Version None)
Quarter: 2009Q4

REPORT INFORMATION
  Report Type: 
  Country: None (occurrence: None)
  Receive Date: 20091202
  Receipt Date: 20091104
  Transmission Date: 20100525
  Serious: No
  Sender: FDA-Public Use
  Company Number: US-BAYER-200916616BCC

PATIENT
  Age: 45 Year
  Sex: Female

DRUGS (5)
  1. ALEVE (CAPLET) [Suspect]
     Indication: NEURALGIA
     Dosage: DOCTOR RECOMMENDED 9 CAPLETS PER DAY
     Route: 048
  2. ALEVE (CAPLET) [Suspect]
     Dosage: DOCTOR RECOMMENDED 9 CAPLETS PER DAY
     Route: 048
  3. ALEVE [Suspect]
     Indication: NEURALGIA
     Route: 048
  4. NARCOTICS [Concomitant]
     Route: 065
  5. MUSCLE RELAXANT [Concomitant]
     Route: 065

REACTIONS (3)
  - CHOKING [None]
  - RETCHING [None]
  - THROAT IRRITATION [None]
